FAERS Safety Report 6145134-9 (Version None)
Quarter: 2009Q2

REPORT INFORMATION
  Report Type: 
  Country: None (occurrence: None)
  Receive Date: 20090406
  Receipt Date: 20090330
  Transmission Date: 20091009
  Serious: Yes (Other)
  Sender: FDA-Public Use
  Company Number: US-JNJFOC-20090400141

PATIENT
  Age: 53 Year
  Sex: Male
  Weight: 85.28 kg

DRUGS (5)
  1. TYLENOL COLD HEAD CONGESTION DAYTIME COOL BURST [Suspect]
     Indication: SINUSITIS
     Dosage: 2 DOSE ONCE EVERY 4-6 HOURS
     Route: 048
  2. ZITHROMAX [Concomitant]
     Indication: SINUSITIS
  3. NASONEX [Concomitant]
     Indication: MULTIPLE ALLERGIES
  4. OXYMETAZOLINE HCL [Concomitant]
     Indication: NASAL CONGESTION
  5. OXYMETAZOLINE HCL [Concomitant]
     Indication: MULTIPLE ALLERGIES

REACTIONS (1)
  - DYSARTHRIA [None]
